FAERS Safety Report 25590191 (Version 1)
Quarter: 2025Q3

REPORT INFORMATION
  Report Type: Report from Study
  Country: US (occurrence: US)
  Receive Date: 20250722
  Receipt Date: 20250722
  Transmission Date: 20251020
  Serious: Yes (Other)
  Sender: TEVA
  Company Number: US-TEVA-VS-3353062

PATIENT
  Age: 50 Year
  Sex: Female

DRUGS (1)
  1. DISULFIRAM [Suspect]
     Active Substance: DISULFIRAM
     Indication: Alcohol use disorder
     Route: 065

REACTIONS (1)
  - Drug-induced liver injury [Recovered/Resolved]
